FAERS Safety Report 23605275 (Version 1)
Quarter: 2024Q1

REPORT INFORMATION
  Report Type: Spontaneous
  Country: US (occurrence: None)
  Receive Date: 20240306
  Receipt Date: 20240306
  Transmission Date: 20240410
  Serious: Yes (Other)
  Sender: FDA-Public Use
  Company Number: None

PATIENT
  Age: 68 Year
  Sex: Male
  Weight: 108.45 kg

DRUGS (6)
  1. TESTOSTERONE CYPIONATE [Suspect]
     Active Substance: TESTOSTERONE CYPIONATE
     Indication: Blood testosterone decreased
     Dosage: 1 INJECTION  WEEKLY INJECTION INTRAMUSCULAR?
     Route: 030
  2. Testosterone CYP 200MG/ML SDV 1 ML [Concomitant]
  3. hemp oil CBC [Concomitant]
  4. VITAMINS [Concomitant]
     Active Substance: VITAMINS
  5. BABY ASPIRIN [Concomitant]
  6. prostate sublimate [Concomitant]

REACTIONS (1)
  - Heart rate increased [None]

NARRATIVE: CASE EVENT DATE: 20240306
